FAERS Safety Report 17615819 (Version 1)
Quarter: 2020Q2

REPORT INFORMATION
  Report Type: Spontaneous
  Country: US (occurrence: US)
  Receive Date: 20200402
  Receipt Date: 20200402
  Transmission Date: 20200713
  Serious: Yes (Other)
  Sender: FDA-Public Use
  Company Number: None

PATIENT
  Age: 4 Year
  Sex: Male
  Weight: 19.35 kg

DRUGS (4)
  1. ALBUTEROL. [Concomitant]
     Active Substance: ALBUTEROL
  2. FLIVENT [Concomitant]
  3. CLARITIN [Concomitant]
     Active Substance: LORATADINE
  4. SINGULAIR [Suspect]
     Active Substance: MONTELUKAST SODIUM
     Indication: ASTHMA
     Route: 048

REACTIONS (14)
  - Bruxism [None]
  - Anxiety [None]
  - Paraesthesia [None]
  - Abdominal pain upper [None]
  - Epistaxis [None]
  - Pollakiuria [None]
  - Anger [None]
  - Self-injurious ideation [None]
  - Stress [None]
  - Urticaria [None]
  - Sleep talking [None]
  - Throat clearing [None]
  - Dysphemia [None]
  - Hostility [None]
